FAERS Safety Report 11295538 (Version 1)
Quarter: 2015Q3

REPORT INFORMATION
  Report Type: Spontaneous
  Country: US (occurrence: None)
  Receive Date: 20150722
  Receipt Date: 20150722
  Transmission Date: 20151125
  Serious: No
  Sender: FDA-Public Use
  Company Number: None

PATIENT
  Age: 49 Year
  Sex: Male

DRUGS (1)
  1. PIPERACILLIN/TAZOBACTAM [Suspect]
     Active Substance: PIPERACILLIN SODIUM\TAZOBACTAM SODIUM
     Route: 042
     Dates: start: 20120807, end: 20120815

REACTIONS (4)
  - Blood glucose increased [None]
  - Blood albumin decreased [None]
  - Tubulointerstitial nephritis [None]
  - Renal impairment [None]

NARRATIVE: CASE EVENT DATE: 20120831
